FAERS Safety Report 4601495-0 (Version None)
Quarter: 2005Q1

REPORT INFORMATION
  Report Type: 
  Country: None (occurrence: None)
  Receive Date: 20050308
  Receipt Date: 20050225
  Transmission Date: 20050727
  Serious: Yes (Other)
  Sender: FDA-Public Use
  Company Number: US-MERCK-0502USA03582

PATIENT
  Sex: Male

DRUGS (4)
  1. ZETIA [Suspect]
     Route: 048
     Dates: start: 20050101
  2. MULTIVITAMIN [Concomitant]
     Route: 065
  3. ASPIRIN [Concomitant]
     Route: 065
  4. PRAVACHOL [Concomitant]
     Route: 065

REACTIONS (2)
  - RASH ERYTHEMATOUS [None]
  - RASH PRURITIC [None]
